FAERS Safety Report 19240521 (Version 4)
Quarter: 2021Q2

REPORT INFORMATION
  Report Type: Report from Study
  Country: JP (occurrence: JP)
  Receive Date: 20210511
  Receipt Date: 20210524
  Transmission Date: 20210717
  Serious: Yes (Hospitalization)
  Sender: FDA-Public Use
  Company Number: JP-ROCHE-2821129

PATIENT
  Age: 71 Year
  Sex: Female
  Weight: 51 kg

DRUGS (9)
  1. PEGFILGRASTIM [Suspect]
     Active Substance: PEGFILGRASTIM
     Route: 058
     Dates: start: 20191227, end: 20191227
  2. PACLITAXEL. [Suspect]
     Active Substance: PACLITAXEL
     Indication: TRIPLE NEGATIVE BREAST CANCER
     Dosage: DATE OF MOST RECENT DOSE 118 MG OF PACLITAXEL:04/DEC/2019
     Route: 042
     Dates: start: 20190910
  3. CYCLOPHOSPHAMIDE. [Suspect]
     Active Substance: CYCLOPHOSPHAMIDE
     Indication: TRIPLE NEGATIVE BREAST CANCER
     Dosage: DATE OF MOST RECENT DOSE 892 MG OF CYCLOPHOSPHAMIDE: 22/JAN/2020
     Route: 042
     Dates: start: 20191210
  4. PEGFILGRASTIM [Suspect]
     Active Substance: PEGFILGRASTIM
     Indication: TRIPLE NEGATIVE BREAST CANCER
     Route: 058
     Dates: start: 20200124, end: 20200124
  5. PEGFILGRASTIM [Suspect]
     Active Substance: PEGFILGRASTIM
     Route: 058
     Dates: start: 20191212, end: 20191212
  6. DOXORUBICIN [Suspect]
     Active Substance: DOXORUBICIN
     Indication: TRIPLE NEGATIVE BREAST CANCER
     Dosage: DATE OF MOST RECENT DOSE 89 MG OF DOXORUBICIN: 22/JAN/2020
     Route: 042
     Dates: start: 20191210
  7. LEVEMIR [Concomitant]
     Active Substance: INSULIN DETEMIR
  8. ATEZOLIZUMAB. [Suspect]
     Active Substance: ATEZOLIZUMAB
     Indication: TRIPLE NEGATIVE BREAST CANCER
     Dosage: DATE OF MOST RECENT DOSE OF ATEZOLIZUMAB PRIOR TO AE: 02/SEP/2020
     Route: 041
     Dates: start: 20190910
  9. PEGFILGRASTIM [Suspect]
     Active Substance: PEGFILGRASTIM
     Route: 058
     Dates: start: 20200110, end: 20200110

REACTIONS (1)
  - Type 1 diabetes mellitus [Not Recovered/Not Resolved]

NARRATIVE: CASE EVENT DATE: 20210309
